FAERS Safety Report 23101809 (Version 4)
Quarter: 2024Q1

REPORT INFORMATION
  Report Type: Spontaneous
  Country: US (occurrence: US)
  Receive Date: 20231025
  Receipt Date: 20240304
  Transmission Date: 20240410
  Serious: Yes (Other)
  Sender: FDA-Public Use
  Company Number: US-VIIV HEALTHCARE LIMITED-US2023AMR141494

PATIENT
  Age: 54 Year
  Sex: Female

DRUGS (5)
  1. RILPIVIRINE [Suspect]
     Active Substance: RILPIVIRINE
     Indication: HIV infection
     Dosage: UNK, UNK, Q2M, EVERY 8 WEEKS
     Route: 065
     Dates: start: 20220301
  2. CABOTEGRAVIR [Suspect]
     Active Substance: CABOTEGRAVIR
     Indication: HIV infection
     Dosage: UNK, UNK, Q2M, EVERY 8 WEEKS
     Route: 065
     Dates: start: 20220301
  3. TRIZIVIR [Suspect]
     Active Substance: ABACAVIR SULFATE\LAMIVUDINE\ZIDOVUDINE
     Indication: HIV infection
     Dosage: 1 DF, BID
     Route: 065
  4. ATRIPLA [Concomitant]
     Active Substance: EFAVIRENZ\EMTRICITABINE\TENOFOVIR DISOPROXIL FUMARATE
     Indication: Product used for unknown indication
     Dosage: UNK
     Route: 065
  5. COMPLERA [Concomitant]
     Active Substance: EMTRICITABINE\RILPIVIRINE HYDROCHLORIDE\TENOFOVIR DISOPROXIL FUMARATE
     Indication: Product used for unknown indication
     Dosage: UNK
     Route: 065

REACTIONS (11)
  - Metabolic surgery [Unknown]
  - Lipoma [Unknown]
  - Tenderness [Not Recovered/Not Resolved]
  - Rhinorrhoea [Unknown]
  - Chills [Unknown]
  - Nasopharyngitis [Unknown]
  - Discomfort [Recovered/Resolved]
  - Therapy cessation [Recovered/Resolved]
  - Weight increased [Unknown]
  - Blood glucose decreased [Not Recovered/Not Resolved]
  - Hot flush [Unknown]

NARRATIVE: CASE EVENT DATE: 20231130
